FAERS Safety Report 15675783 (Version 1)
Quarter: 2018Q4

REPORT INFORMATION
  Report Type: Spontaneous
  Country: TN (occurrence: TN)
  Receive Date: 20181130
  Receipt Date: 20181130
  Transmission Date: 20190205
  Serious: Yes (Other)
  Sender: FDA-Public Use
  Company Number: TN-RECORDATI RARE DISEASES INC.-TN-R13005-18-00298

PATIENT
  Age: 21 Year
  Sex: Male

DRUGS (3)
  1. ONCOVIN [Suspect]
     Active Substance: VINCRISTINE SULFATE
     Indication: EMBRYONAL RHABDOMYOSARCOMA
     Route: 065
  2. IFOSFAMIDE. [Suspect]
     Active Substance: IFOSFAMIDE
     Indication: EMBRYONAL RHABDOMYOSARCOMA
     Route: 065
  3. DACTINOMYCIN [Suspect]
     Active Substance: DACTINOMYCIN
     Indication: EMBRYONAL RHABDOMYOSARCOMA
     Route: 065

REACTIONS (3)
  - Neoplasm progression [Not Recovered/Not Resolved]
  - Off label use [Unknown]
  - Embryonal rhabdomyosarcoma [Not Recovered/Not Resolved]
